FAERS Safety Report 18582769 (Version 12)
Quarter: 2022Q3

REPORT INFORMATION
  Report Type: Spontaneous
  Country: AT (occurrence: AT)
  Receive Date: 20201205
  Receipt Date: 20220929
  Transmission Date: 20221027
  Serious: Yes (Hospitalization)
  Sender: FDA-Public Use
  Company Number: AT-ROCHE-2720022

PATIENT
  Age: 89 Year
  Sex: Female
  Weight: 89 kg

DRUGS (51)
  1. DOCETAXEL [Suspect]
     Active Substance: DOCETAXEL
     Indication: Breast cancer metastatic
     Dosage: 137 MG, TIW (DATE OF MOST RECENT DOSE: 23 JUL 2018 137 MG, EVERY 3 WEEKS,)
     Route: 065
     Dates: start: 20180608, end: 20180608
  2. DOCETAXEL [Suspect]
     Active Substance: DOCETAXEL
     Dosage: 134.32 MG, TIW
     Route: 042
     Dates: start: 20180723, end: 20180904
  3. DOCETAXEL [Suspect]
     Active Substance: DOCETAXEL
     Dosage: 132.78 MG, TIW
     Route: 065
     Dates: start: 20180926, end: 20180926
  4. DOCETAXEL [Suspect]
     Active Substance: DOCETAXEL
     Dosage: 106.22 MG
     Route: 065
     Dates: start: 20181017, end: 20181017
  5. DOCETAXEL [Suspect]
     Active Substance: DOCETAXEL
     Dosage: 672.74 MG
     Route: 065
  6. FULVESTRANT [Suspect]
     Active Substance: FULVESTRANT
     Indication: Breast cancer metastatic
     Dosage: 500 MG, BIW (MOST RECENT DOSE PRIOR TO THE EVENT: 26 DEC 2018/ 500 MG EVERY 2 WEEKS, FREQ:2 WK;)
     Route: 065
     Dates: start: 20181128, end: 20181226
  7. FULVESTRANT [Suspect]
     Active Substance: FULVESTRANT
     Dosage: 500 MG, BIW (ONGOING)
     Route: 030
     Dates: start: 20181226
  8. ANASTROZOLE [Suspect]
     Active Substance: ANASTROZOLE
     Indication: Breast cancer metastatic
     Dosage: MOST RECENT DOSE PRIOR TO AE 14/MAY/2018/ 1 MG, 1X/DAY,
     Route: 048
     Dates: start: 20170324
  9. TRASTUZUMAB [Suspect]
     Active Substance: TRASTUZUMAB
     Indication: Breast cancer metastatic
     Dosage: MOST RECENT DOSE PRIOR TO THE EVENT: 14/JUL/2017, 08/JUN/2018, 23/JUL/2018, 08/JUN/2018
     Route: 065
     Dates: start: 20170324, end: 20170324
  10. TRASTUZUMAB [Suspect]
     Active Substance: TRASTUZUMAB
     Dosage: 534 MG, TIW
     Route: 065
     Dates: start: 20170414, end: 20170619
  11. TRASTUZUMAB [Suspect]
     Active Substance: TRASTUZUMAB
     Dosage: 534 MG, TIW
     Route: 065
     Dates: start: 20170714, end: 20170804
  12. TRASTUZUMAB [Suspect]
     Active Substance: TRASTUZUMAB
     Dosage: 480 MG, TIW
     Route: 065
     Dates: start: 20170828, end: 20171030
  13. TRASTUZUMAB [Suspect]
     Active Substance: TRASTUZUMAB
     Dosage: 474 MG, TIW
     Route: 065
     Dates: start: 20171213, end: 20180514
  14. TRASTUZUMAB [Suspect]
     Active Substance: TRASTUZUMAB
     Dosage: 462 MG, TIW
     Route: 065
     Dates: start: 20180608, end: 20180608
  15. TRASTUZUMAB [Suspect]
     Active Substance: TRASTUZUMAB
     Dosage: 450 MG, TIW
     Route: 065
     Dates: start: 20180723, end: 20180904
  16. TRASTUZUMAB [Suspect]
     Active Substance: TRASTUZUMAB
     Dosage: 438 MG, EVERY 3 WEEKS
     Route: 065
     Dates: start: 20180926, end: 20180926
  17. TRASTUZUMAB [Suspect]
     Active Substance: TRASTUZUMAB
     Dosage: 438 MG, TIW
     Route: 065
     Dates: start: 20181017, end: 20181017
  18. TRASTUZUMAB [Suspect]
     Active Substance: TRASTUZUMAB
     Dosage: ON 24 APR 2020, MOST RECENT DOSE
     Route: 065
     Dates: start: 20181219, end: 20200424
  19. TRASTUZUMAB [Suspect]
     Active Substance: TRASTUZUMAB
     Dosage: ONGOING
     Route: 065
     Dates: start: 20200515
  20. TRASTUZUMAB [Suspect]
     Active Substance: TRASTUZUMAB
     Dosage: UNK
     Route: 065
     Dates: start: 20181017, end: 20181017
  21. TRASTUZUMAB [Suspect]
     Active Substance: TRASTUZUMAB
     Dosage: 408 MG, TIW (ON 24/APR/2020, MOST RECENT DOSE/ 408 MG, EVERY 3 WEEKS)
     Route: 065
     Dates: start: 20181219
  22. TRASTUZUMAB [Suspect]
     Active Substance: TRASTUZUMAB
     Dosage: 420 MG, TIW
     Route: 065
     Dates: start: 20181128, end: 20181128
  23. TRASTUZUMAB [Suspect]
     Active Substance: TRASTUZUMAB
     Dosage: UNK
     Route: 065
     Dates: start: 20200515
  24. TRASTUZUMAB [Suspect]
     Active Substance: TRASTUZUMAB
     Dosage: 408 MG, EVERY 3 WEEKS (ON 24/APR/2020, MOST RECENT DOSE
     Route: 065
     Dates: end: 20210424
  25. TRASTUZUMAB [Suspect]
     Active Substance: TRASTUZUMAB
     Dosage: 450 MG, EVERY 3 WEEK
     Route: 042
     Dates: start: 20200515
  26. PERTUZUMAB [Suspect]
     Active Substance: PERTUZUMAB
     Indication: Breast cancer metastatic
     Dosage: 840 MG, EVERY 3 WEEKS, MOST RECENT DOSE PRIOR TO THE EVENT: 14/JUL/2017, 13/DEC/2017, 23/JUL/2018
     Route: 065
     Dates: start: 20170324, end: 20170324
  27. PERTUZUMAB [Suspect]
     Active Substance: PERTUZUMAB
     Dosage: 420 MG, WEEKLY
     Route: 065
     Dates: start: 20170414, end: 20170619
  28. PERTUZUMAB [Suspect]
     Active Substance: PERTUZUMAB
     Dosage: 420 MG, WEEKLY
     Route: 065
     Dates: start: 20170714, end: 20171030
  29. PERTUZUMAB [Suspect]
     Active Substance: PERTUZUMAB
     Dosage: 840 MG, TIW (MOST RECENT DOSE PRIOR TO THE EVENT: 14/JUL/2017, 13/DEC/2017, 23/JUL/2018)
     Route: 065
     Dates: start: 20170714, end: 20171030
  30. PERTUZUMAB [Suspect]
     Active Substance: PERTUZUMAB
     Dosage: 420 MG, WEEKLY
     Route: 065
     Dates: start: 20171213, end: 20180608
  31. PERTUZUMAB [Suspect]
     Active Substance: PERTUZUMAB
     Dosage: 420 MG, WEEKLY
     Route: 065
     Dates: start: 20180723
  32. PERTUZUMAB [Suspect]
     Active Substance: PERTUZUMAB
     Dosage: 420 MG, EVERY 3 WEEK
     Route: 065
     Dates: start: 20180723
  33. DENOSUMAB [Suspect]
     Active Substance: DENOSUMAB
     Indication: Breast cancer metastatic
     Dosage: 120 MG, QMO, MOST RECENT DOSE PRIOR TO THE EVENT: 02 MAR 2021
     Route: 065
     Dates: start: 20170505, end: 20180329
  34. XGEVA [Concomitant]
     Active Substance: DENOSUMAB
     Indication: Breast cancer metastatic
     Dosage: 120 MG, QMO (MOST RECENT DOSE PRIOR TO THE EVENT: 02/MAR/2021)
     Route: 058
     Dates: start: 20170505, end: 20180329
  35. XGEVA [Concomitant]
     Active Substance: DENOSUMAB
     Dosage: UNK
     Route: 065
     Dates: start: 20181017
  36. CORTISONE ACETATE [Concomitant]
     Active Substance: CORTISONE ACETATE
     Indication: Product used for unknown indication
     Dosage: ONGOING = NOT CHECKED
     Route: 065
     Dates: start: 20180608, end: 20180608
  37. METHYLPREDNISOLONE [Concomitant]
     Active Substance: METHYLPREDNISOLONE
     Indication: Product used for unknown indication
     Dosage: UNK
     Route: 065
     Dates: start: 20191210
  38. DEXAMETHASONE [Concomitant]
     Active Substance: DEXAMETHASONE
     Indication: Product used for unknown indication
     Dosage: UNK
     Route: 065
     Dates: start: 20180723, end: 20181017
  39. DEXAMETHASONE [Concomitant]
     Active Substance: DEXAMETHASONE
     Dosage: UNK
     Route: 065
     Dates: start: 20181017
  40. RANITIDINE HYDROCHLORIDE [Concomitant]
     Active Substance: RANITIDINE HYDROCHLORIDE
     Indication: Product used for unknown indication
     Dosage: UNK
     Route: 065
     Dates: start: 20170414, end: 20191119
  41. PANTOPRAZOLE [Concomitant]
     Active Substance: PANTOPRAZOLE
     Indication: Product used for unknown indication
     Dosage: UNK
     Route: 065
  42. DIMETHINDENE [Concomitant]
     Active Substance: DIMETHINDENE
     Indication: Product used for unknown indication
     Dosage: ONGOING = CHECKED
     Route: 065
     Dates: start: 20170414
  43. DEXABENE [Concomitant]
     Indication: Product used for unknown indication
     Dosage: UNK
     Route: 065
     Dates: start: 20181107
  44. HYDROCHLOROTHIAZIDE\RAMIPRIL [Concomitant]
     Active Substance: HYDROCHLOROTHIAZIDE\RAMIPRIL
     Indication: Product used for unknown indication
     Dosage: UNK
     Route: 065
  45. HYDROCHLOROTHIAZIDE\RAMIPRIL [Concomitant]
     Active Substance: HYDROCHLOROTHIAZIDE\RAMIPRIL
     Dosage: ONGOING = CHECKED
     Route: 065
     Dates: start: 20210129
  46. KYTRIL [Concomitant]
     Active Substance: GRANISETRON HYDROCHLORIDE
     Indication: Product used for unknown indication
     Dosage: ONGOING = CHECKED
     Route: 065
     Dates: start: 20180608, end: 20181017
  47. CALCIUM CARBONATE\CHOLECALCIFEROL [Concomitant]
     Active Substance: CALCIUM CARBONATE\CHOLECALCIFEROL
     Indication: Product used for unknown indication
     Dosage: UNK
     Route: 065
     Dates: start: 20170505, end: 20190615
  48. HYDROCHLOROTHIAZIDE [Concomitant]
     Active Substance: HYDROCHLOROTHIAZIDE
     Indication: Product used for unknown indication
     Dosage: UNK
     Route: 065
     Dates: start: 20210129
  49. FERINJECT [Concomitant]
     Active Substance: FERRIC CARBOXYMALTOSE
     Indication: Product used for unknown indication
     Dosage: ONGOING = NOT CHECKED
     Route: 065
     Dates: start: 20220218, end: 20220218
  50. VIBRAMYCIN [Concomitant]
     Active Substance: DOXYCYCLINE
     Indication: Sinusitis
     Dosage: ONGOING = NOT CHECKED
     Route: 065
     Dates: start: 20180417, end: 20180615
  51. ASPIRIN [Concomitant]
     Active Substance: ASPIRIN
     Indication: Hypertension
     Dosage: UNK
     Route: 065
     Dates: start: 20171120, end: 20190615

REACTIONS (18)
  - Dyspnoea exertional [Recovered/Resolved]
  - Polyneuropathy [Unknown]
  - Fatigue [Recovered/Resolved]
  - Dysgeusia [Recovered/Resolved]
  - Diarrhoea [Recovered/Resolved]
  - Hypertension [Recovered/Resolved]
  - Ejection fraction decreased [Recovered/Resolved]
  - Ejection fraction decreased [Recovered/Resolved]
  - Flank pain [Recovered/Resolved]
  - Renal pain [Recovered/Resolved]
  - Ejection fraction decreased [Not Recovered/Not Resolved]
  - Pain in jaw [Recovered/Resolved]
  - Sinusitis [Recovered/Resolved]
  - Dyspnoea [Recovered/Resolved]
  - Dyspnoea [Recovered/Resolved]
  - Hypertension [Recovering/Resolving]
  - Pyrexia [Not Recovered/Not Resolved]
  - Paraesthesia [Recovered/Resolved]

NARRATIVE: CASE EVENT DATE: 20171030
